FAERS Safety Report 9264891 (Version 4)
Quarter: 2015Q3

REPORT INFORMATION
  Report Type: Report from Study
  Country: BR (occurrence: BR)
  Receive Date: 20130501
  Receipt Date: 20150803
  Transmission Date: 20151125
  Serious: Yes (Other)
  Sender: FDA-Public Use
  Company Number: PHHY2013BR042724

PATIENT
  Sex: Female
  Weight: 90 kg

DRUGS (4)
  1. DIOVAN [Suspect]
     Active Substance: VALSARTAN
     Indication: HYPERTENSION
     Dosage: 80 MG, QD (NIGHT)
     Route: 048
  2. DIOVAN [Suspect]
     Active Substance: VALSARTAN
     Dosage: 160 MG, QD
     Route: 048
  3. DIOVAN HCT [Suspect]
     Active Substance: HYDROCHLOROTHIAZIDE\VALSARTAN
     Indication: HYPERTENSION
     Dosage: 1 DF (80/12.5MG), QD MORNING
     Route: 048
  4. VITAMIN B12 [Concomitant]
     Active Substance: CYANOCOBALAMIN
     Indication: PRODUCT USED FOR UNKNOWN INDICATION
     Dosage: 1 DF, QMO
     Route: 030

REACTIONS (21)
  - Renal failure [Not Recovered/Not Resolved]
  - Fall [Unknown]
  - Thrombosis [Recovered/Resolved]
  - Labyrinthitis [Not Recovered/Not Resolved]
  - Anaemia [Recovered/Resolved]
  - Weight increased [Recovered/Resolved]
  - Atrial fibrillation [Unknown]
  - Foot fracture [Not Recovered/Not Resolved]
  - Spinal cord disorder [Unknown]
  - Bone decalcification [Unknown]
  - Heart rate increased [Not Recovered/Not Resolved]
  - Blood disorder [Unknown]
  - Peripheral vascular disorder [Not Recovered/Not Resolved]
  - Osteoporosis [Unknown]
  - Pain in extremity [Unknown]
  - Ulcer [Not Recovered/Not Resolved]
  - Anxiety [Not Recovered/Not Resolved]
  - Malaise [Not Recovered/Not Resolved]
  - Arthralgia [Not Recovered/Not Resolved]
  - Weight decreased [Recovered/Resolved]
  - Dizziness [Not Recovered/Not Resolved]

NARRATIVE: CASE EVENT DATE: 2013
